FAERS Safety Report 5366314-6 (Version None)
Quarter: 2007Q2

REPORT INFORMATION
  Report Type: 
  Country: None (occurrence: None)
  Receive Date: 20070620
  Receipt Date: 20070620
  Transmission Date: 20071010
  Serious: Yes (Life-Threatening, Hospitalization)
  Sender: FDA-Public Use
  Company Number: None

PATIENT
  Age: 83 Year
  Sex: Female

DRUGS (1)
  1. TAXOL [Suspect]
     Indication: CHEMOTHERAPY
     Dosage: 65 MG
     Dates: start: 20070117

REACTIONS (2)
  - BLOOD PRESSURE DECREASED [None]
  - CYANOSIS [None]
